FAERS Safety Report 25045240 (Version 1)
Quarter: 2025Q1

REPORT INFORMATION
  Report Type: Spontaneous
  Country: US (occurrence: None)
  Receive Date: 20250305
  Receipt Date: 20250305
  Transmission Date: 20250409
  Serious: Yes (Death)
  Sender: FDA-CTU
  Company Number: None

PATIENT
  Age: 66 Year
  Sex: Female

DRUGS (3)
  1. ABACAVIR [Suspect]
     Active Substance: ABACAVIR
     Indication: HIV infection
     Dosage: 1 TABLET BID ORAL
     Route: 048
  2. ISENTRESS [Suspect]
     Active Substance: RALTEGRAVIR POTASSIUM
     Indication: HIV infection
     Dosage: FREQUENCY : TWICE A DAY;?
     Route: 048
  3. Lamuvidine 150mg tab [Concomitant]

REACTIONS (2)
  - Renal failure [None]
  - Pneumonia [None]

NARRATIVE: CASE EVENT DATE: 20250304
